FAERS Safety Report 9954191 (Version 1)
Quarter: 2014Q1

REPORT INFORMATION
  Report Type: Report from Study
  Country: US (occurrence: US)
  Receive Date: 20140304
  Receipt Date: 20140304
  Transmission Date: 20141002
  Serious: No
  Sender: FDA-Public Use
  Company Number: US-ABBVIE-13P-163-1076182-00

PATIENT
  Age: 67 Year
  Sex: Female

DRUGS (8)
  1. HUMIRA [Suspect]
     Indication: CROHN^S DISEASE
     Dates: start: 20121227
  2. CELEBREX [Concomitant]
     Indication: BONE PAIN
     Route: 048
     Dates: start: 20121119
  3. ADVIL [Concomitant]
     Indication: BONE PAIN
     Dosage: 2 DAILY
     Route: 048
  4. OMEPRAZOLE [Concomitant]
     Indication: GASTROOESOPHAGEAL REFLUX DISEASE
     Route: 048
     Dates: start: 20121030
  5. ALFALFA [Concomitant]
     Indication: ANAEMIA
     Dosage: 3 DAILY
     Route: 048
  6. POTASSIUM 99 [Concomitant]
     Indication: PRODUCT USED FOR UNKNOWN INDICATION
     Dosage: 1-2 PILLS PER DAY
     Route: 048
  7. VITAMIN D-3 [Concomitant]
     Indication: VITAMIN SUPPLEMENTATION
     Dosage: 1000 MG DAILY
  8. VITAMIN D-3 [Concomitant]
     Indication: VITAMIN SUPPLEMENTATION

REACTIONS (1)
  - Hypersensitivity [Not Recovered/Not Resolved]
